FAERS Safety Report 13891039 (Version 1)
Quarter: 2017Q3

REPORT INFORMATION
  Report Type: Report from Study
  Country: DE (occurrence: DE)
  Receive Date: 20170822
  Receipt Date: 20170822
  Transmission Date: 20171127
  Serious: Yes (Hospitalization)
  Sender: FDA-Public Use
  Company Number: PHHO2017DE011830

PATIENT
  Age: 40 Year
  Sex: Female
  Weight: 48 kg

DRUGS (5)
  1. TRAMADOL. [Concomitant]
     Active Substance: TRAMADOL
     Indication: PAIN
     Dosage: 100 MG, PRN
     Route: 048
  2. NOVAMIN (METAMIZOLE SODIUM) [Concomitant]
     Active Substance: METAMIZOLE SODIUM
     Indication: PAIN
     Dosage: 500 MG, TID
     Route: 048
     Dates: start: 20170731
  3. BUSCOPAN [Concomitant]
     Active Substance: BUTYLSCOPOLAMINE BROMIDE
     Indication: PAIN
     Dosage: 10 MG, OT
     Route: 048
     Dates: start: 20170731, end: 20170731
  4. PDR001 [Suspect]
     Active Substance: INVESTIGATIONAL PRODUCT
     Indication: DRUG LEVEL
     Dosage: 400 MG, QW4
     Route: 042
     Dates: start: 20170727
  5. RAD 666 / RAD 001A [Suspect]
     Active Substance: EVEROLIMUS
     Indication: DRUG LEVEL
     Dosage: 5 MG, QW
     Route: 048
     Dates: start: 20170727

REACTIONS (1)
  - Bone pain [Not Recovered/Not Resolved]

NARRATIVE: CASE EVENT DATE: 20170808
